FAERS Safety Report 4283625-6 (Version None)
Quarter: 2004Q1

REPORT INFORMATION
  Report Type: 
  Country: None (occurrence: None)
  Receive Date: 20040129
  Receipt Date: 20040129
  Transmission Date: 20041129
  Serious: Yes (Hospitalization)
  Sender: FDA-Public Use
  Company Number: None

PATIENT
  Age: 37 Year
  Sex: Female
  Weight: 116.3 kg

DRUGS (7)
  1. CYTARABINE [Suspect]
     Indication: ACUTE MYELOID LEUKAEMIA
     Dosage: HIGH DOSE
  2. NIFEDIPINE [Concomitant]
  3. SPIRONOLACTONE [Concomitant]
  4. PAXIL [Concomitant]
  5. ALPRAZOLAM [Concomitant]
  6. POTASSIUM [Concomitant]
  7. PREVACID [Concomitant]

REACTIONS (3)
  - BODY TEMPERATURE INCREASED [None]
  - CHILLS [None]
  - NASOPHARYNGITIS [None]
